FAERS Safety Report 7200108-1 (Version None)
Quarter: 2010Q4

REPORT INFORMATION
  Report Type: 
  Country: None (occurrence: None)
  Receive Date: 20101228
  Receipt Date: 20101220
  Transmission Date: 20110411
  Serious: Yes (Death)
  Sender: FDA-Public Use
  Company Number: JP-AMGEN-JPNCT2010011761

PATIENT

DRUGS (5)
  1. PANITUMUMAB [Suspect]
     Indication: COLORECTAL CANCER
     Dosage: 6 MG/KG, Q2WK
     Route: 041
     Dates: start: 20100826, end: 20100924
  2. PANITUMUMAB [Suspect]
  3. ERBITUX [Suspect]
     Indication: COLORECTAL CANCER
     Route: 041
     Dates: start: 20100701, end: 20100801
  4. OXYCONTIN [Concomitant]
     Dosage: UNK
     Route: 048
  5. OXINORM [Concomitant]
     Dosage: UNK
     Route: 048

REACTIONS (4)
  - COLORECTAL CANCER [None]
  - DERMATITIS ACNEIFORM [None]
  - HYPOCALCAEMIA [None]
  - PARONYCHIA [None]
